FAERS Safety Report 10550449 (Version 1)
Quarter: 2014Q4

REPORT INFORMATION
  Report Type: Spontaneous
  Country: US (occurrence: US)
  Receive Date: 20141029
  Receipt Date: 20141029
  Transmission Date: 20150529
  Serious: No
  Sender: FDA-Public Use
  Company Number: US-TEVA-461687USA

PATIENT
  Sex: Female

DRUGS (6)
  1. EAR DROP [Suspect]
     Active Substance: UNSPECIFIED INGREDIENT
     Dates: start: 2008
  2. PROVIGIL [Suspect]
     Active Substance: MODAFINIL
     Route: 048
     Dates: start: 20140206
  3. PROVIGIL [Suspect]
     Active Substance: MODAFINIL
     Dosage: 100 MG EVERY 45 MINS FOR A TOTAL OF 400 MG IN AM
     Route: 048
     Dates: start: 2013
  4. PROVIGIL [Suspect]
     Active Substance: MODAFINIL
     Dosage: 400 MILLIGRAM DAILY;
     Route: 048
     Dates: end: 2013
  5. MODAFINIL. [Suspect]
     Active Substance: MODAFINIL
     Dosage: 500-600 MG DAILY IN DIVIDED DOSES IN AM
     Route: 048
     Dates: start: 201309, end: 2013
  6. NUVIGIL [Concomitant]
     Active Substance: ARMODAFINIL
     Dosage: REPORTED AS BOTH 250 MG AND 400 MG DAILY
     Dates: start: 20140131, end: 2014

REACTIONS (11)
  - Product quality issue [Unknown]
  - Activities of daily living impaired [Unknown]
  - Tinnitus [Not Recovered/Not Resolved]
  - Somnolence [Unknown]
  - Dyspnoea [Unknown]
  - Depression [Unknown]
  - Tinnitus [Not Recovered/Not Resolved]
  - Fatigue [Unknown]
  - Asthma [Unknown]
  - Apathy [Unknown]
  - Extra dose administered [Unknown]

NARRATIVE: CASE EVENT DATE: 2008
